FAERS Safety Report 20523271 (Version 1)
Quarter: 2022Q1

REPORT INFORMATION
  Report Type: Spontaneous
  Country: US (occurrence: None)
  Receive Date: 20220227
  Receipt Date: 20220227
  Transmission Date: 20220423
  Serious: No
  Sender: FDA-Public Use
  Company Number: 2022A072032

PATIENT
  Age: 56 Year
  Sex: Female
  Weight: 108.9 kg

DRUGS (1)
  1. FARXIGA [Suspect]
     Active Substance: DAPAGLIFLOZIN PROPANEDIOL
     Indication: Diabetes mellitus
     Route: 048
     Dates: start: 202202

REACTIONS (3)
  - Genital burning sensation [Unknown]
  - Feeling hot [Unknown]
  - Genital infection fungal [Unknown]

NARRATIVE: CASE EVENT DATE: 20220101
